FAERS Safety Report 9764694 (Version 1)
Quarter: 2013Q4

REPORT INFORMATION
  Report Type: Spontaneous
  Country: US (occurrence: None)
  Receive Date: 20131213
  Receipt Date: 20131213
  Transmission Date: 20140711
  Serious: Yes (Other)
  Sender: FDA-Public Use
  Company Number: 2013SA024685

PATIENT
  Sex: Female

DRUGS (2)
  1. CAPZASIN HP [Suspect]
     Indication: ARTHRITIS
     Route: 061
  2. CAPZASIN HP [Suspect]
     Indication: ARTHRALGIA
     Route: 061

REACTIONS (3)
  - Thermal burn [None]
  - Blister [None]
  - Application site reaction [None]
